FAERS Safety Report 8074904-5 (Version None)
Quarter: 2012Q1

REPORT INFORMATION
  Report Type: 
  Country: None (occurrence: None)
  Receive Date: 20120126
  Receipt Date: 20120118
  Transmission Date: 20120608
  Serious: Yes (Hospitalization)
  Sender: FDA-Public Use
  Company Number: FR-B.I. PHARMACEUTICALS,INC./RIDGEFIELD-2012-FF-00072FF

PATIENT
  Age: 92 Year
  Sex: Male

DRUGS (10)
  1. ATORVASTATIN [Concomitant]
  2. VITAMIN D [Concomitant]
  3. OXAZEPAM [Concomitant]
  4. RISPERIDONE [Concomitant]
  5. EXELON [Concomitant]
  6. POLYETHYLENE GLYCOL [Concomitant]
  7. TAMSULOSIN HCL [Suspect]
     Dosage: 0.4 MG
     Route: 048
     Dates: start: 20111118, end: 20111125
  8. ASPIRIN [Concomitant]
  9. POTASSIUM CHLORIDE [Concomitant]
  10. FUROSEMIDE [Concomitant]

REACTIONS (2)
  - ANAEMIA [None]
  - LEUKOPENIA [None]
